FAERS Safety Report 15695770 (Version 2)
Quarter: 2018Q4

REPORT INFORMATION
  Report Type: Spontaneous
  Country: FI (occurrence: FI)
  Receive Date: 20181206
  Receipt Date: 20181224
  Transmission Date: 20190205
  Serious: Yes (Disabling, Other)
  Sender: FDA-Public Use
  Company Number: FI-AMGEN-FINSP2018171764

PATIENT
  Age: 56 Year
  Sex: Female
  Weight: 80 kg

DRUGS (8)
  1. CALCICHEW [Concomitant]
     Active Substance: CALCIUM CARBONATE
  2. SOMAC [Concomitant]
     Active Substance: PANTOPRAZOLE SODIUM
  3. XGEVA [Suspect]
     Active Substance: DENOSUMAB
     Indication: RENAL CELL CARCINOMA
     Dosage: UNK
     Route: 065
     Dates: start: 201703
  4. PEGORION [Concomitant]
     Active Substance: POLYETHYLENE GLYCOL 4000
     Dosage: UNK, AS NECESSARY
  5. OXYNORM [Concomitant]
     Active Substance: OXYCODONE HYDROCHLORIDE
     Dosage: UNK, AS NECESSARY
  6. AMLODIPIN [Concomitant]
     Active Substance: AMLODIPINE BESYLATE
  7. INLYTA [Concomitant]
     Active Substance: AXITINIB
     Indication: RENAL CELL CARCINOMA
  8. OXYCONTIN [Concomitant]
     Active Substance: OXYCODONE HYDROCHLORIDE

REACTIONS (1)
  - Tibia fracture [Not Recovered/Not Resolved]

NARRATIVE: CASE EVENT DATE: 20180108
